FAERS Safety Report 8399190-8 (Version None)
Quarter: 2012Q2

REPORT INFORMATION
  Report Type: 
  Country: None (occurrence: None)
  Receive Date: 20120531
  Receipt Date: 20120524
  Transmission Date: 20120825
  Serious: Yes (Hospitalization)
  Sender: FDA-Public Use
  Company Number: US-GLAXOSMITHKLINE-A0797351A

PATIENT
  Age: 48 Year
  Sex: Female
  Weight: 77.3 kg

DRUGS (2)
  1. AVANDAMET [Suspect]
     Indication: DIABETES MELLITUS
     Dosage: 4MG TWICE PER DAY
     Route: 048
     Dates: start: 20040716, end: 20050211
  2. AVANDIA [Suspect]
     Indication: DIABETES MELLITUS
     Dosage: 4MG TWICE PER DAY
     Route: 048
     Dates: start: 20020528, end: 20071120

REACTIONS (7)
  - RIB FRACTURE [None]
  - SCAPULA FRACTURE [None]
  - EMOTIONAL DISTRESS [None]
  - ANXIETY [None]
  - NERVOUSNESS [None]
  - DEPRESSION [None]
  - SPINAL COMPRESSION FRACTURE [None]
